FAERS Safety Report 4706763-X (Version None)
Quarter: 2005Q2

REPORT INFORMATION
  Report Type: 
  Country: None (occurrence: None)
  Receive Date: 20050629
  Receipt Date: 20050301
  Transmission Date: 20051028
  Serious: No
  Sender: FDA-Public Use
  Company Number: 05P-163-0292393-00

PATIENT
  Age: 69 Year
  Sex: Female
  Weight: 63.5036 kg

DRUGS (7)
  1. HUMIRA [Suspect]
     Indication: RHEUMATOID ARTHRITIS
     Dosage: 40 MG, 1 IN 2 WK, SUBCUTANEOUS
     Route: 058
     Dates: start: 20050101
  2. PREDNISONE TAB [Concomitant]
  3. GABAPENTIN [Concomitant]
  4. CELECOXIB [Concomitant]
  5. HORMONE REPLACEMENT [Concomitant]
  6. CALCIUM CARBONATE [Concomitant]
  7. ALENDRONATE SODIUM [Concomitant]

REACTIONS (3)
  - DRUG INEFFECTIVE [None]
  - INJECTION SITE EXTRAVASATION [None]
  - INJECTION SITE IRRITATION [None]
